FAERS Safety Report 7593814-0 (Version None)
Quarter: 2011Q3

REPORT INFORMATION
  Report Type: 
  Country: None (occurrence: None)
  Receive Date: 20110706
  Receipt Date: 20110429
  Transmission Date: 20111222
  Serious: Yes (Other)
  Sender: FDA-Public Use
  Company Number: US-BAYER-2011-036629

PATIENT
  Age: 54 Year
  Sex: Female

DRUGS (1)
  1. GADOLINIUM IN UNSPECIFIED DRUG [Suspect]
     Indication: ANGIOGRAM

REACTIONS (5)
  - SKIN HYPERPIGMENTATION [None]
  - SKIN PLAQUE [None]
  - NEPHROGENIC SYSTEMIC FIBROSIS [None]
  - TENDERNESS [None]
  - SKIN INDURATION [None]
